FAERS Safety Report 6186257-8 (Version None)
Quarter: 2009Q2

REPORT INFORMATION
  Report Type: 
  Country: None (occurrence: None)
  Receive Date: 20090511
  Receipt Date: 20090507
  Transmission Date: 20091009
  Serious: Yes (Death, Hospitalization, Other)
  Sender: FDA-Public Use
  Company Number: PHHY2008BR13152

PATIENT
  Sex: Female
  Weight: 65 kg

DRUGS (10)
  1. ACLASTA [Suspect]
     Dosage: ONE APPLICATION A YEAR
     Route: 042
     Dates: start: 20080623
  2. CALCIUM CARBONATE [Concomitant]
     Dosage: 500 MG, BID
     Route: 048
  3. REMICADE [Concomitant]
     Indication: MUSCULOSKELETAL PAIN
     Dosage: 1 APPLICATION EVERY 2 MONTHS
     Route: 042
  4. VITAMIN B COMPLEX CAP [Concomitant]
     Dosage: 2 TABLETS/DAY STARTED APPROX 2 YEARS AGO
     Route: 048
  5. FOLIC ACID [Concomitant]
     Indication: ANAEMIA
     Dosage: 1 TABLET/DAY STARTED APPROX 3 YEARS AGO
     Route: 048
  6. PRELONE [Concomitant]
     Indication: MUSCULOSKELETAL PAIN
     Dosage: 20 MG, QD
     Route: 048
  7. HYGROTON [Concomitant]
     Indication: BLOOD PRESSURE
     Dosage: 25 MG, QD
     Route: 048
  8. DIPYRONE [Concomitant]
     Dosage: 40 DROPS WHEN NECESSARY
     Route: 048
  9. ENALAPRIL MALEATE [Concomitant]
     Indication: BLOOD PRESSURE
     Dosage: 10 MG, QD STARTED APPROX 10 YEARS AGO
     Route: 048
  10. HYDROCHLOROTHIAZIDE [Concomitant]
     Indication: BLOOD PRESSURE
     Dosage: 25 MG, QD STARTED APPROX 10 YEARS AGO
     Route: 048

REACTIONS (15)
  - ACUTE ABDOMEN [None]
  - CHOLECYSTITIS [None]
  - CYANOSIS [None]
  - DIARRHOEA [None]
  - ENTERITIS [None]
  - GASTROINTESTINAL NECROSIS [None]
  - HYPOTENSION [None]
  - LUNG DISORDER [None]
  - MALAISE [None]
  - NAUSEA [None]
  - PAIN [None]
  - RECTAL HAEMORRHAGE [None]
  - SEPTIC SHOCK [None]
  - VASCULAR INJURY [None]
  - VOMITING [None]
